FAERS Safety Report 9767266 (Version 1)
Quarter: 2013Q4

REPORT INFORMATION
  Report Type: Spontaneous
  Country: US (occurrence: US)
  Receive Date: 20131217
  Receipt Date: 20131217
  Transmission Date: 20140711
  Serious: No
  Sender: FDA-Public Use
  Company Number: US-GLAXOSMITHKLINE-A1046015A

PATIENT
  Age: 61 Year
  Sex: Female

DRUGS (1)
  1. VOTRIENT [Suspect]
     Indication: GASTROINTESTINAL CARCINOMA
     Dosage: 200MG UNKNOWN
     Dates: start: 20130702

REACTIONS (1)
  - Liver function test abnormal [Recovered/Resolved]
